FAERS Safety Report 9546550 (Version 1)
Quarter: 2013Q3

REPORT INFORMATION
  Report Type: Spontaneous
  Country: US (occurrence: US)
  Receive Date: 20130923
  Receipt Date: 20130923
  Transmission Date: 20140515
  Serious: No
  Sender: FDA-Public Use
  Company Number: US-009507513-1309USA007738

PATIENT
  Sex: Female

DRUGS (2)
  1. HYZAAR [Suspect]
     Indication: HYPERTENSION
     Dosage: UNK
     Route: 048
     Dates: start: 201302
  2. POTASSIUM (UNSPECIFIED) [Concomitant]

REACTIONS (8)
  - Fatigue [Recovered/Resolved]
  - Heart rate irregular [Recovered/Resolved]
  - Heart rate irregular [Recovered/Resolved]
  - Movement disorder [Recovered/Resolved]
  - Wrong technique in drug usage process [Recovered/Resolved]
  - Nausea [Unknown]
  - Gait disturbance [Unknown]
  - Confusional state [Unknown]
